FAERS Safety Report 4357883-3 (Version None)
Quarter: 2004Q2

REPORT INFORMATION
  Report Type: 
  Country: None (occurrence: None)
  Receive Date: 20040514
  Receipt Date: 20040505
  Transmission Date: 20050107
  Serious: Yes (Other)
  Sender: FDA-Public Use
  Company Number: PHBS2004BR06080

PATIENT
  Sex: Male

DRUGS (1)
  1. MELLARIL [Suspect]
     Indication: PARKINSON'S DISEASE
     Dosage: 25 MG, BID
     Route: 048

REACTIONS (4)
  - ARTHRALGIA [None]
  - DRUG HYPERSENSITIVITY [None]
  - ERYTHEMA [None]
  - PYREXIA [None]
